FAERS Safety Report 5900121-8 (Version None)
Quarter: 2008Q3

REPORT INFORMATION
  Report Type: 
  Country: None (occurrence: None)
  Receive Date: 20080926
  Receipt Date: 20080915
  Transmission Date: 20090109
  Serious: Yes (Hospitalization)
  Sender: FDA-Public Use
  Company Number: DE-ELI_LILLY_AND_COMPANY-DE200807000704

PATIENT
  Sex: Male

DRUGS (4)
  1. CIALIS [Suspect]
     Dosage: 10 MG (HALF A 20MG TABLET), UNKNOWN
     Route: 048
     Dates: start: 20080602
  2. DIOVAN [Concomitant]
     Dosage: 1/2, DAILY (1/D)
     Route: 065
  3. SORTIS [Concomitant]
     Dosage: 40, DAILY (1/D)
     Route: 065
  4. ALOPURINOL [Concomitant]
     Dosage: 1/2, DAILY (1/D)
     Route: 065

REACTIONS (1)
  - TRANSIENT ISCHAEMIC ATTACK [None]
